FAERS Safety Report 22116192 (Version 1)
Quarter: 2023Q1

REPORT INFORMATION
  Report Type: Spontaneous
  Country: US (occurrence: US)
  Receive Date: 20230320
  Receipt Date: 20230320
  Transmission Date: 20230417
  Serious: No
  Sender: FDA-Public Use
  Company Number: US-PERRIGO-22US009976

PATIENT
  Age: 91 Year
  Sex: Female
  Weight: 125 kg

DRUGS (1)
  1. ACETAMINOPHEN [Suspect]
     Active Substance: ACETAMINOPHEN
     Indication: Ear pain
     Dosage: 1300 MG, Q 4 TO 6 HOURS
     Route: 048
     Dates: start: 20220717, end: 20220718

REACTIONS (3)
  - Nervousness [Recovered/Resolved]
  - Inappropriate schedule of product administration [Unknown]
  - Incorrect dose administered [Unknown]

NARRATIVE: CASE EVENT DATE: 20220717
